FAERS Safety Report 21575097 (Version 2)
Quarter: 2022Q4

REPORT INFORMATION
  Report Type: Spontaneous
  Country: US (occurrence: US)
  Receive Date: 20221110
  Receipt Date: 20221118
  Transmission Date: 20230113
  Serious: Yes (Hospitalization, Other)
  Sender: FDA-Public Use
  Company Number: US-CIPLA LTD.-2022US06524

PATIENT
  Age: 75 Year
  Sex: Male

DRUGS (11)
  1. OLANZAPINE [Suspect]
     Active Substance: OLANZAPINE
     Indication: Agitation
     Dosage: REPEATED DOSES OF 2.5 MG
     Route: 065
  2. OLANZAPINE [Suspect]
     Active Substance: OLANZAPINE
     Indication: Psychotic disorder
     Dosage: UNK, CUMULATIVE DOSE OF 25 MG ON DAY 3 OF HOSPITALIZATION
     Route: 065
  3. VALPROIC ACID [Concomitant]
     Active Substance: VALPROIC ACID
     Indication: Dementia with Lewy bodies
     Dosage: 500 MILLIGRAM, BID (EVERY 12 HOURS)
     Route: 065
  4. PIMAVANSERIN [Concomitant]
     Active Substance: PIMAVANSERIN
     Indication: Psychotic disorder
     Dosage: 34 MG, DAILY
     Route: 065
  5. PIMAVANSERIN [Concomitant]
     Active Substance: PIMAVANSERIN
     Indication: Hallucination
  6. DONEPEZIL [Concomitant]
     Active Substance: DONEPEZIL
     Indication: Dementia with Lewy bodies
     Dosage: 10 MG, DAILY
     Route: 065
  7. DONEPEZIL [Concomitant]
     Active Substance: DONEPEZIL
     Dosage: 15 MG, DAILY
     Route: 065
  8. MEMANTINE [Concomitant]
     Active Substance: MEMANTINE
     Indication: Product used for unknown indication
     Dosage: 5 MG, DAILY
     Route: 065
  9. CLOZAPINE [Concomitant]
     Active Substance: CLOZAPINE
     Indication: Hallucination
     Dosage: TITRATION TO 50 MG BID (EVERY 12 HOURS)
     Route: 065
  10. CLOZAPINE [Concomitant]
     Active Substance: CLOZAPINE
     Indication: Dementia with Lewy bodies
     Dosage: GRADUAL UP-TITRATION TO 50 MG DAILY
     Route: 065
  11. CLOZAPINE [Concomitant]
     Active Substance: CLOZAPINE
     Dosage: 12.5 MG DAILY
     Route: 065

REACTIONS (5)
  - Neuropsychiatric symptoms [Recovered/Resolved]
  - Mental disorder [Recovered/Resolved]
  - Condition aggravated [Recovered/Resolved]
  - Cognitive disorder [Recovered/Resolved]
  - Motor dysfunction [Recovered/Resolved]
